FAERS Safety Report 9475632 (Version 2)
Quarter: 2013Q4

REPORT INFORMATION
  Report Type: Spontaneous
  Country: GB (occurrence: GB)
  Receive Date: 20130826
  Receipt Date: 20131115
  Transmission Date: 20140711
  Serious: Yes (Hospitalization, Other)
  Sender: FDA-Public Use
  Company Number: GB-ROCHE-1266009

PATIENT
  Age: 21 Year
  Sex: Female

DRUGS (2)
  1. NAPROSYN [Suspect]
     Indication: HEADACHE
     Route: 048
     Dates: start: 20130723, end: 20130804
  2. RANITIDINE [Concomitant]
     Route: 065
     Dates: start: 20130822

REACTIONS (4)
  - Oesophagitis [Unknown]
  - Gastritis [Recovered/Resolved]
  - Haematemesis [Recovered/Resolved]
  - Melaena [Recovered/Resolved]
